FAERS Safety Report 14189124 (Version 1)
Quarter: 2017Q4

REPORT INFORMATION
  Report Type: Spontaneous
  Country: US (occurrence: US)
  Receive Date: 20171115
  Receipt Date: 20171115
  Transmission Date: 20180321
  Serious: Yes (Other)
  Sender: FDA-Public Use
  Company Number: US-ROCHE-2023684

PATIENT
  Age: 9 Year
  Sex: Male

DRUGS (4)
  1. ACTILYSE [Suspect]
     Active Substance: ALTEPLASE
     Indication: THROMBOSIS
     Route: 065
  2. ACTILYSE [Suspect]
     Active Substance: ALTEPLASE
     Indication: HEPATIC INFARCTION
  3. ACTILYSE [Suspect]
     Active Substance: ALTEPLASE
     Indication: SPLENIC INFARCTION
  4. HEPARIN [Concomitant]
     Active Substance: HEPARIN SODIUM
     Dosage: 500 MG/HOUR
     Route: 065

REACTIONS (2)
  - Haemoglobin decreased [Unknown]
  - Extravasation [Unknown]
